FAERS Safety Report 8163326-4 (Version None)
Quarter: 2012Q1

REPORT INFORMATION
  Report Type: 
  Country: None (occurrence: None)
  Receive Date: 20120224
  Receipt Date: 20120217
  Transmission Date: 20120608
  Serious: Yes (Other)
  Sender: FDA-Public Use
  Company Number: PR-BAYER-2012-016890

PATIENT
  Sex: Female

DRUGS (1)
  1. GADAVIST [Suspect]
     Indication: NUCLEAR MAGNETIC RESONANCE IMAGING BRAIN
     Dosage: 4 ML, ONCE
     Route: 042

REACTIONS (4)
  - ERYTHEMA [None]
  - TRACHEAL OEDEMA [None]
  - DYSPNOEA [None]
  - ANAPHYLACTOID REACTION [None]
